FAERS Safety Report 9099897 (Version 1)
Quarter: 2013Q1

REPORT INFORMATION
  Report Type: Spontaneous
  Country: FR (occurrence: FR)
  Receive Date: 20130214
  Receipt Date: 20130214
  Transmission Date: 20140127
  Serious: Yes (Hospitalization)
  Sender: FDA-Public Use
  Company Number: FR-PFIZER INC-2013053834

PATIENT
  Age: 43 Year
  Sex: Female

DRUGS (1)
  1. TRINORDIOL [Suspect]
     Dosage: UNK
     Route: 048
     Dates: start: 1992, end: 1998

REACTIONS (2)
  - Pulmonary embolism [Recovered/Resolved]
  - Phlebitis [Recovered/Resolved]
